FAERS Safety Report 7521034-4 (Version None)
Quarter: 2011Q2

REPORT INFORMATION
  Report Type: 
  Country: None (occurrence: None)
  Receive Date: 20110603
  Receipt Date: 20101202
  Transmission Date: 20111010
  Serious: Yes (Hospitalization, Other)
  Sender: FDA-Public Use
  Company Number: US-BAYER-201026571NA

PATIENT
  Age: 31 Year
  Sex: Female
  Weight: 68.934 kg

DRUGS (9)
  1. METRONIDAZOLE [Concomitant]
  2. YAZ [Suspect]
     Indication: CONTRACEPTION
     Dosage: UNK UNK, QD
     Route: 048
     Dates: start: 20080401, end: 20090503
  3. MINOCYCLINE HCL [Concomitant]
  4. VICODIN [Concomitant]
     Indication: PAIN
  5. CIPRO [Concomitant]
  6. PENICILLIN V POTASSIUM [Concomitant]
  7. DOXYCYCLINE [Concomitant]
     Indication: INFECTION
  8. ZITHROMAX [Concomitant]
  9. AZITHROMYCIN [Concomitant]

REACTIONS (11)
  - TACHYCARDIA [None]
  - PULMONARY INFARCTION [None]
  - DYSPNOEA [None]
  - PYREXIA [None]
  - PULMONARY EMBOLISM [None]
  - CHEST PAIN [None]
  - PALPITATIONS [None]
  - PELVIC VENOUS THROMBOSIS [None]
  - DEEP VEIN THROMBOSIS [None]
  - PAIN [None]
  - ABDOMINAL PAIN UPPER [None]
